FAERS Safety Report 17814086 (Version 2)
Quarter: 2020Q3

REPORT INFORMATION
  Report Type: Report from Study
  Country: US (occurrence: US)
  Receive Date: 20200521
  Receipt Date: 20200807
  Transmission Date: 20201102
  Serious: Yes (Hospitalization)
  Sender: FDA-Public Use
  Company Number: US-ACTELION-A-NJ2019-197947

PATIENT
  Sex: Female
  Weight: 74.38 kg

DRUGS (7)
  1. SILDENAFIL CITRATE. [Concomitant]
     Active Substance: SILDENAFIL CITRATE
  2. UPTRAVI [Suspect]
     Active Substance: SELEXIPAG
     Indication: PULMONARY ARTERIAL HYPERTENSION
     Dosage: 1000 MCG, BID
     Route: 048
  3. UPTRAVI [Suspect]
     Active Substance: SELEXIPAG
     Dosage: 400 MCG, BID
     Route: 048
  4. OPSUMIT [Suspect]
     Active Substance: MACITENTAN
     Indication: PULMONARY ARTERIAL HYPERTENSION
     Dosage: 10 MG, QD
     Route: 048
  5. UPTRAVI [Suspect]
     Active Substance: SELEXIPAG
     Dosage: 200 MCG, BID
     Route: 048
  6. UPTRAVI [Suspect]
     Active Substance: SELEXIPAG
     Dosage: 600 MCG, BID
     Route: 048
  7. UPTRAVI [Suspect]
     Active Substance: SELEXIPAG
     Dosage: 800 MCG, BID
     Route: 048

REACTIONS (15)
  - Unevaluable event [Unknown]
  - Pancreatitis [Unknown]
  - Headache [Unknown]
  - Fluid retention [Unknown]
  - Renal disorder [Unknown]
  - Diarrhoea [Unknown]
  - Oxygen saturation decreased [Recovering/Resolving]
  - Erythema [Unknown]
  - Anal incontinence [Unknown]
  - Polyuria [Unknown]
  - Vision blurred [Recovered/Resolved]
  - Peripheral swelling [Unknown]
  - Dementia [Unknown]
  - Decreased appetite [Unknown]
  - Urinary incontinence [Unknown]
